FAERS Safety Report 20601061 (Version 1)
Quarter: 2022Q1

REPORT INFORMATION
  Report Type: Spontaneous
  Country: US (occurrence: US)
  Receive Date: 20220316
  Receipt Date: 20220316
  Transmission Date: 20220423
  Serious: Yes (Life-Threatening, Hospitalization)
  Sender: FDA-Public Use
  Company Number: US-MACLEODS PHARMACEUTICALS US LTD-MAC2022034772

PATIENT

DRUGS (1)
  1. ARIPIPRAZOLE [Suspect]
     Active Substance: ARIPIPRAZOLE
     Indication: Product used for unknown indication
     Dosage: 26 DOSAGE FORM, SINGLE, (TWENTY-SIX TWO-MILLIGRAM (MG)
     Route: 065

REACTIONS (8)
  - Electrocardiogram ST segment depression [Recovered/Resolved]
  - Muscle spasticity [Recovered/Resolved]
  - Sinus tachycardia [Recovered/Resolved]
  - Hypersomnia [Recovered/Resolved]
  - Hypertension [Recovered/Resolved]
  - Lethargy [Unknown]
  - Tremor [Recovered/Resolved]
  - Accidental overdose [Unknown]
